FAERS Safety Report 17776937 (Version 2)
Quarter: 2020Q2

REPORT INFORMATION
  Report Type: Spontaneous
  Country: NO (occurrence: NO)
  Receive Date: 20200513
  Receipt Date: 20200616
  Transmission Date: 20200714
  Serious: Yes (Life-Threatening, Hospitalization, Other)
  Sender: FDA-Public Use
  Company Number: NO-ACCORD-181210

PATIENT
  Age: 53 Year
  Sex: Female

DRUGS (2)
  1. PACLITAXEL/PACLITAXEL LIPOSOME [Suspect]
     Active Substance: PACLITAXEL
     Indication: UTERINE CANCER
  2. CARBOPLATIN. [Suspect]
     Active Substance: CARBOPLATIN
     Indication: UTERINE CANCER

REACTIONS (2)
  - Posterior reversible encephalopathy syndrome [Recovered/Resolved]
  - Off label use [Unknown]
